FAERS Safety Report 18146995 (Version 3)
Quarter: 2020Q4

REPORT INFORMATION
  Report Type: Report from Study
  Country: ES (occurrence: ES)
  Receive Date: 20200814
  Receipt Date: 20201020
  Transmission Date: 20210113
  Serious: Yes (Other)
  Sender: FDA-Public Use
  Company Number: ES-AMGEN-ESPNI2020127866

PATIENT
  Age: 71 Year
  Sex: Male
  Weight: 79.4 kg

DRUGS (10)
  1. OXALIPLATIN. [Suspect]
     Active Substance: OXALIPLATIN
     Dosage: 170 MILLIGRAM, Q2WK
     Route: 042
  2. 5 FU [Suspect]
     Active Substance: FLUOROURACIL
     Dosage: 780 MILLIGRAM, Q2WK
     Route: 040
  3. FOLINIC ACID [Concomitant]
     Active Substance: LEUCOVORIN
     Indication: COLORECTAL CANCER
     Dosage: 750 MILLIGRAM, Q2WK
     Route: 042
     Dates: start: 20190424, end: 20200708
  4. FOLINIC ACID [Concomitant]
     Active Substance: LEUCOVORIN
     Dosage: 780 MILLIGRAM, Q2WK
     Route: 042
  5. 5 FU [Suspect]
     Active Substance: FLUOROURACIL
     Indication: COLORECTAL CANCER
     Dosage: 3600 MILLIGRAM, Q2WK
     Route: 040
     Dates: start: 20190424, end: 20200708
  6. 5 FU [Suspect]
     Active Substance: FLUOROURACIL
     Dosage: 4600 MILLIGRAM, Q2WK
     Route: 042
     Dates: start: 20190424, end: 20200708
  7. PANITUMUMAB [Suspect]
     Active Substance: PANITUMUMAB
     Dosage: 510 MILLIGRAM, Q2WK
     Route: 042
     Dates: start: 20200803
  8. 5 FU [Suspect]
     Active Substance: FLUOROURACIL
     Dosage: 4700 MILLIGRAM, Q2WK
     Route: 042
  9. PANITUMUMAB [Suspect]
     Active Substance: PANITUMUMAB
     Indication: COLORECTAL CANCER
     Dosage: 510 MILLIGRAM, Q2WK
     Route: 042
     Dates: start: 20190424, end: 20200708
  10. OXALIPLATIN. [Suspect]
     Active Substance: OXALIPLATIN
     Indication: COLORECTAL CANCER
     Dosage: 160 MILLIGRAM, Q2WK
     Route: 042
     Dates: start: 20190424, end: 20200708

REACTIONS (3)
  - Neutropenia [Recovered/Resolved]
  - Diarrhoea [Recovered/Resolved]
  - Mucosal inflammation [Recovered/Resolved]

NARRATIVE: CASE EVENT DATE: 20200709
